FAERS Safety Report 4555573-5 (Version None)
Quarter: 2005Q1

REPORT INFORMATION
  Report Type: 
  Country: None (occurrence: None)
  Receive Date: 20050118
  Receipt Date: 20050118
  Transmission Date: 20050727
  Serious: Yes (Life-Threatening)
  Sender: FDA-Public Use
  Company Number: None

PATIENT
  Age: 74 Year
  Sex: Female
  Weight: 52.6173 kg

DRUGS (5)
  1. ALTACE [Suspect]
     Indication: HYPERTENSION
     Dosage: 2.5 MG  1 X DAILY (047)
     Dates: start: 20040820, end: 20050103
  2. LOPRESSOR [Concomitant]
  3. ZOCOR [Concomitant]
  4. ZETIA [Concomitant]
  5. ACTONEL [Concomitant]

REACTIONS (3)
  - COUGH [None]
  - DIZZINESS [None]
  - DYSPHONIA [None]
